FAERS Safety Report 18567020 (Version 1)
Quarter: 2020Q4

REPORT INFORMATION
  Report Type: Spontaneous
  Country: US (occurrence: US)
  Receive Date: 20201201
  Receipt Date: 20201201
  Transmission Date: 20210114
  Serious: Yes (Hospitalization)
  Sender: FDA-Public Use
  Company Number: US-INCYTE CORPORATION-2020IN011673

PATIENT

DRUGS (1)
  1. JAKAFI [Suspect]
     Active Substance: RUXOLITINIB
     Indication: BLOOD DISORDER
     Dosage: 10 MILLIGRAM, QD
     Route: 048
     Dates: start: 20201001

REACTIONS (4)
  - Gait disturbance [Unknown]
  - Dizziness [Unknown]
  - Feeling abnormal [Unknown]
  - Off label use [Unknown]
